FAERS Safety Report 7105094-0 (Version None)
Quarter: 2010Q4

REPORT INFORMATION
  Report Type: 
  Country: None (occurrence: None)
  Receive Date: 20101109
  Receipt Date: 20101029
  Transmission Date: 20110411
  Serious: Yes (Life-Threatening, Hospitalization, Other)
  Sender: FDA-Public Use
  Company Number: 018039

PATIENT
  Sex: Female

DRUGS (5)
  1. KEPPRA [Suspect]
     Indication: COMPLEX PARTIAL SEIZURES
     Dosage: (250 MG BID ORAL)
     Route: 048
     Dates: start: 20100622, end: 20100901
  2. ACETAMINOPHEN [Concomitant]
  3. DICLOFENAC [Concomitant]
  4. BACLOFEN [Concomitant]
  5. ENOXAPARIN SODIUM [Concomitant]

REACTIONS (4)
  - ALANINE AMINOTRANSFERASE INCREASED [None]
  - DRUG RASH WITH EOSINOPHILIA AND SYSTEMIC SYMPTOMS [None]
  - DRUG WITHDRAWAL SYNDROME [None]
  - DYSTONIA [None]
